FAERS Safety Report 22959033 (Version 2)
Quarter: 2023Q4

REPORT INFORMATION
  Report Type: Spontaneous
  Country: NL (occurrence: NL)
  Receive Date: 20230919
  Receipt Date: 20231010
  Transmission Date: 20240109
  Serious: Yes (Death)
  Sender: FDA-Public Use
  Company Number: NL-JNJFOC-20230936053

PATIENT
  Sex: Male

DRUGS (3)
  1. HALDOL [Suspect]
     Active Substance: HALOPERIDOL
     Indication: Restlessness
     Dosage: 5 DROPS
     Route: 065
     Dates: start: 20230330, end: 20230629
  2. RISPERIDONE [Concomitant]
     Active Substance: RISPERIDONE
  3. MORPHINE [Concomitant]
     Active Substance: MORPHINE

REACTIONS (5)
  - Hyperhidrosis [Fatal]
  - Gastrointestinal infection [Fatal]
  - Muscle rigidity [Fatal]
  - Gait disturbance [Fatal]
  - Headache [Fatal]
